FAERS Safety Report 6108194-7 (Version None)
Quarter: 2009Q1

REPORT INFORMATION
  Report Type: 
  Country: None (occurrence: None)
  Receive Date: 20090309
  Receipt Date: 20090306
  Transmission Date: 20090719
  Serious: Yes (Life-Threatening, Hospitalization, Other)
  Sender: FDA-Public Use
  Company Number: GB-BRISTOL-MYERS SQUIBB COMPANY-14503189

PATIENT
  Age: 69 Year
  Sex: Male
  Weight: 55 kg

DRUGS (6)
  1. ARIPIPRAZOLE [Suspect]
     Indication: CONFUSIONAL STATE
     Route: 048
     Dates: start: 20090108
  2. RISPERIDONE [Suspect]
     Indication: AGITATION
     Route: 048
     Dates: start: 20090108, end: 20090208
  3. RISPERIDONE [Suspect]
     Indication: CONFUSIONAL STATE
     Route: 048
     Dates: start: 20090108, end: 20090208
  4. DOMPERIDONE [Concomitant]
  5. GAVISCON [Concomitant]
  6. LANSOPRAZOLE [Concomitant]

REACTIONS (1)
  - HYPOGLYCAEMIA [None]
